FAERS Safety Report 12157978 (Version 10)
Quarter: 2016Q4

REPORT INFORMATION
  Report Type: Report from Study
  Country: DE (occurrence: DE)
  Receive Date: 20160308
  Receipt Date: 20161130
  Transmission Date: 20170207
  Serious: Yes (Hospitalization)
  Sender: FDA-Public Use
  Company Number: DE-BEH-2016059781

PATIENT
  Age: 67 Year
  Sex: Female
  Weight: 72 kg

DRUGS (21)
  1. PALLADON [Concomitant]
     Active Substance: HYDROMORPHONE
     Dosage: IF NEEDED
     Route: 065
  2. PRIVIGEN [Suspect]
     Active Substance: HUMAN IMMUNOGLOBULIN G
     Dosage: 10 G, TOT
     Route: 042
     Dates: start: 20160920, end: 20160920
  3. PANTOPRAZOLE [Concomitant]
     Active Substance: PANTOPRAZOLE SODIUM
  4. METAMIZOL [Concomitant]
     Active Substance: METAMIZOLE SODIUM
  5. LANALIDOMIDE [Concomitant]
     Route: 048
  6. METFORMIN [Suspect]
     Active Substance: METFORMIN HYDROCHLORIDE
     Indication: DIABETES MELLITUS
     Dosage: TOOK FOR 3 DAYS
     Route: 065
  7. DEXAMETHASONE. [Concomitant]
     Active Substance: DEXAMETHASONE
     Indication: PLASMA CELL MYELOMA
     Route: 042
     Dates: start: 20151006, end: 20160105
  8. L-THYROXIN [Concomitant]
     Active Substance: LEVOTHYROXINE SODIUM
  9. PRIVIGEN [Suspect]
     Active Substance: HUMAN IMMUNOGLOBULIN G
     Indication: INFECTION
     Dosage: 30 G, QMT
     Route: 042
     Dates: start: 20160304
  10. PRIVIGEN [Suspect]
     Active Substance: HUMAN IMMUNOGLOBULIN G
     Dosage: 20 G, TOT
     Route: 042
     Dates: start: 20160920, end: 20160920
  11. SIMVASTATIN. [Concomitant]
     Active Substance: SIMVASTATIN
  12. ZOMETA [Concomitant]
     Active Substance: ZOLEDRONIC ACID
     Route: 065
  13. HYDROMORPHON [Concomitant]
     Active Substance: HYDROMORPHONE
  14. PRIVIGEN [Suspect]
     Active Substance: HUMAN IMMUNOGLOBULIN G
     Indication: SECONDARY IMMUNODEFICIENCY
     Dosage: 10 G, UNK
     Route: 042
     Dates: start: 20160112, end: 20160112
  15. PREDNISOLUT                        /00016203/ [Concomitant]
     Indication: ALLERGY PROPHYLAXIS
     Dosage: 50 MG, UNK
     Route: 042
     Dates: start: 20160920
  16. PRIVIGEN [Suspect]
     Active Substance: HUMAN IMMUNOGLOBULIN G
     Indication: PLASMACYTOMA
     Dosage: 20 G, UNK
     Route: 042
     Dates: start: 20160112, end: 20160112
  17. PRIVIGEN [Suspect]
     Active Substance: HUMAN IMMUNOGLOBULIN G
     Dosage: 10 G
     Route: 042
     Dates: start: 20160331, end: 20160331
  18. AMLODIPIN [Concomitant]
     Active Substance: AMLODIPINE BESYLATE
  19. ERYTHROPOIETIN [Concomitant]
     Active Substance: ERYTHROPOIETIN
     Route: 065
     Dates: start: 201506
  20. PRIVIGEN [Suspect]
     Active Substance: HUMAN IMMUNOGLOBULIN G
     Dosage: 20 G, UNK
     Route: 042
     Dates: start: 20160331, end: 20160331
  21. VELCADE [Concomitant]
     Active Substance: BORTEZOMIB
     Indication: PLASMA CELL MYELOMA
     Route: 058
     Dates: start: 20151006, end: 20160105

REACTIONS (11)
  - Pneumonia [Unknown]
  - Lactic acidosis [Unknown]
  - Diarrhoea [Unknown]
  - Gastrointestinal disorder [Recovered/Resolved]
  - Renal failure [Unknown]
  - Atrial fibrillation [Recovered/Resolved]
  - Dialysis [Recovered/Resolved]
  - Tachycardia [Recovered/Resolved]
  - Dehydration [Unknown]
  - Chills [Recovered/Resolved]
  - Septic shock [Unknown]

NARRATIVE: CASE EVENT DATE: 2016
